FAERS Safety Report 20404890 (Version 4)
Quarter: 2025Q1

REPORT INFORMATION
  Report Type: Spontaneous
  Country: JP (occurrence: JP)
  Receive Date: 20220131
  Receipt Date: 20250321
  Transmission Date: 20250409
  Serious: Yes (Death, Hospitalization, Other)
  Sender: NOVARTIS
  Company Number: JP-NOVARTISPH-NVSJ2022JP002228

PATIENT
  Age: 67 Year
  Sex: Male
  Weight: 53 kg

DRUGS (6)
  1. ILARIS [Suspect]
     Active Substance: CANAKINUMAB
     Indication: Cryopyrin associated periodic syndrome
     Route: 058
     Dates: start: 201904, end: 202004
  2. ILARIS [Suspect]
     Active Substance: CANAKINUMAB
     Route: 058
     Dates: start: 202004, end: 202104
  3. ILARIS [Suspect]
     Active Substance: CANAKINUMAB
     Route: 058
     Dates: start: 202104
  4. PREDNISOLONE [Concomitant]
     Active Substance: PREDNISOLONE
     Indication: Pyrexia
     Route: 065
  5. PREDNISOLONE [Concomitant]
     Active Substance: PREDNISOLONE
     Indication: Arthritis
     Route: 065
  6. ETRETINATE [Concomitant]
     Active Substance: ETRETINATE
     Indication: Psoriasis
     Route: 065

REACTIONS (13)
  - Secondary amyloidosis [Fatal]
  - Cellulitis [Fatal]
  - Septic shock [Fatal]
  - Atrioventricular block complete [Unknown]
  - Syncope [Unknown]
  - Cardiac failure [Unknown]
  - Cardiac amyloidosis [Unknown]
  - Gastrointestinal disorder [Unknown]
  - Renal disorder [Unknown]
  - Nervous system disorder [Unknown]
  - Pneumonia bacterial [Unknown]
  - Fungal infection [Unknown]
  - Therapeutic response decreased [Unknown]

NARRATIVE: CASE EVENT DATE: 20200401
